FAERS Safety Report 4858458-X (Version None)
Quarter: 2005Q4

REPORT INFORMATION
  Report Type: 
  Country: None (occurrence: None)
  Receive Date: 20051219
  Receipt Date: 20050807
  Transmission Date: 20060501
  Serious: No
  Sender: FDA-Public Use
  Company Number: US-GLAXOSMITHKLINE-A0569989A

PATIENT
  Sex: Female

DRUGS (4)
  1. NICODERM CQ [Suspect]
  2. XANAX [Concomitant]
  3. ALPRAZOLAM [Concomitant]
  4. NORTRIPTYLINE HCL [Concomitant]

REACTIONS (4)
  - APPLICATION SITE ERYTHEMA [None]
  - APPLICATION SITE PRURITUS [None]
  - APPLICATION SITE REACTION [None]
  - APPLICATION SITE SWELLING [None]
